FAERS Safety Report 8435446-8 (Version None)
Quarter: 2012Q2

REPORT INFORMATION
  Report Type: 
  Country: None (occurrence: None)
  Receive Date: 20120608
  Receipt Date: 20120608
  Transmission Date: 20120825
  Serious: Yes (Other)
  Sender: FDA-Public Use
  Company Number: None

PATIENT
  Age: 47 Year
  Sex: Female
  Weight: 49.8957 kg

DRUGS (1)
  1. RIBAVIRIN [Suspect]
     Indication: HEPATITIS
     Dosage: 400MG, PO, BID
     Route: 048
     Dates: start: 20120522, end: 20120525

REACTIONS (8)
  - MOOD SWINGS [None]
  - WEIGHT DECREASED [None]
  - ABDOMINAL PAIN [None]
  - ANXIETY [None]
  - DEPRESSION [None]
  - HEADACHE [None]
  - NAUSEA [None]
  - VOMITING [None]
